FAERS Safety Report 22072852 (Version 2)
Quarter: 2023Q2

REPORT INFORMATION
  Report Type: Spontaneous
  Country: DE (occurrence: DE)
  Receive Date: 20230308
  Receipt Date: 20230405
  Transmission Date: 20230722
  Serious: Yes (Other)
  Sender: FDA-Public Use
  Company Number: DE-ABBVIE-4327138

PATIENT
  Age: 79 Year
  Sex: Male

DRUGS (8)
  1. CARBIDOPA\LEVODOPA [Suspect]
     Active Substance: CARBIDOPA\LEVODOPA
     Indication: Parkinson^s disease
     Route: 050
  2. CARBIDOPA\LEVODOPA [Suspect]
     Active Substance: CARBIDOPA\LEVODOPA
  3. Levodopa/Carbidopa/Entacapon [Concomitant]
     Indication: Product used for unknown indication
     Dosage: 200/50/200 MG?FREQUENCY TEXT: 7.00-9.30-12.00-19:30 O CLOCK
  4. Levodopa/Carbidopa/Entacapon [Concomitant]
     Indication: Product used for unknown indication
     Dosage: 75/18,75/200 MG?FREQUENCY TEXT: 2.30PM-5PM
  5. Levodopa/Carbidopa/Entacapon [Concomitant]
     Indication: Product used for unknown indication
     Dosage: 100/25/200 MG?FREQUENCY TEXT: 22 O `CLOCK
  6. Pramipexol retard [Concomitant]
     Indication: Product used for unknown indication
  7. SAFINAMIDE [Concomitant]
     Active Substance: SAFINAMIDE
     Indication: Product used for unknown indication
  8. BENSERAZIDE HYDROCHLORIDE\LEVODOPA [Concomitant]
     Active Substance: BENSERAZIDE HYDROCHLORIDE\LEVODOPA
     Indication: Product used for unknown indication
     Dosage: 100/25 MG?FREQUENCY TEXT: 6.30 A.M

REACTIONS (13)
  - Upper gastrointestinal haemorrhage [Unknown]
  - Infectious pleural effusion [Unknown]
  - Hypokinesia [Unknown]
  - Freezing phenomenon [Unknown]
  - Pneumonia aspiration [Unknown]
  - Dysphagia [Unknown]
  - Therapeutic response shortened [Unknown]
  - Dyskinesia [Unknown]
  - Decubitus ulcer [Unknown]
  - Hypoxia [Unknown]
  - Aspiration [Unknown]
  - Abdominal distension [Unknown]
  - Gastric atony [Unknown]
